FAERS Safety Report 11661322 (Version 1)
Quarter: 2015Q4

REPORT INFORMATION
  Report Type: Spontaneous
  Country: SI (occurrence: SI)
  Receive Date: 20151026
  Receipt Date: 20151026
  Transmission Date: 20160304
  Serious: Yes (Death)
  Sender: FDA-Public Use
  Company Number: SI-AKORN PHARMACEUTICALS-2015AKN00585

PATIENT
  Age: 32 Year
  Sex: Male

DRUGS (3)
  1. COLLOIDS [Concomitant]
     Indication: PROCEDURAL HAEMORRHAGE
     Dosage: 1500 ML, ONCE
     Route: 065
  2. TRANEXAMIC ACID. [Suspect]
     Active Substance: TRANEXAMIC ACID
     Indication: PROCEDURAL HAEMORRHAGE
     Dosage: 1 G, ONCE
     Route: 065
  3. HAEMOCOMPLETTAN P [Suspect]
     Active Substance: FIBRINOGEN HUMAN
     Indication: PROCEDURAL HAEMORRHAGE
     Dosage: 2 G, ONCE
     Route: 065

REACTIONS (2)
  - Pulmonary embolism [Fatal]
  - Haemodynamic instability [Fatal]
